FAERS Safety Report 16844583 (Version 1)
Quarter: 2019Q4

REPORT INFORMATION
  Report Type: Spontaneous
  Country: US (occurrence: US)
  Receive Date: 20190923
  Receipt Date: 20190923
  Transmission Date: 20200122
  Serious: Yes (Other)
  Sender: FDA-Public Use
  Company Number: None

PATIENT
  Age: 16 Year
  Sex: Male
  Weight: 58.5 kg

DRUGS (3)
  1. STRATTERA [Concomitant]
     Active Substance: ATOMOXETINE HYDROCHLORIDE
  2. METHYLPHENIDATE. [Suspect]
     Active Substance: METHYLPHENIDATE
     Indication: ATTENTION DEFICIT/HYPERACTIVITY DISORDER
     Dosage: ?          QUANTITY:2 TABLET(S);?
     Route: 048
     Dates: start: 20190411, end: 20190416
  3. GUANFACINE. [Concomitant]
     Active Substance: GUANFACINE

REACTIONS (6)
  - Anxiety [None]
  - Adverse drug reaction [None]
  - Disturbance in attention [None]
  - Intentional self-injury [None]
  - Scar [None]
  - Therapeutic response changed [None]

NARRATIVE: CASE EVENT DATE: 20190416
